FAERS Safety Report 26185070 (Version 1)
Quarter: 2025Q4

REPORT INFORMATION
  Report Type: Spontaneous
  Country: US (occurrence: US)
  Receive Date: 20251222
  Receipt Date: 20251222
  Transmission Date: 20260117
  Serious: No
  Sender: ROCHE
  Company Number: US-ROCHE-10000462941

PATIENT

DRUGS (5)
  1. OCREVUS [Suspect]
     Active Substance: OCRELIZUMAB
     Indication: Relapsing multiple sclerosis
  2. OCREVUS [Suspect]
     Active Substance: OCRELIZUMAB
     Indication: Primary progressive multiple sclerosis
  3. OCREVUS [Suspect]
     Active Substance: OCRELIZUMAB
     Indication: Progressive multiple sclerosis
  4. OCREVUS [Suspect]
     Active Substance: OCRELIZUMAB
     Indication: Inflammation
  5. OCREVUS [Suspect]
     Active Substance: OCRELIZUMAB
     Indication: Disability

REACTIONS (2)
  - Drug ineffective [Unknown]
  - No adverse event [Unknown]
